FAERS Safety Report 21698749 (Version 1)
Quarter: 2022Q4

REPORT INFORMATION
  Report Type: Spontaneous
  Country: DE (occurrence: DE)
  Receive Date: 20221208
  Receipt Date: 20221208
  Transmission Date: 20230113
  Serious: Yes (Other)
  Sender: FDA-Public Use
  Company Number: DE-002147023-NVSC2022DE280154

PATIENT
  Age: 49 Year
  Sex: Female

DRUGS (1)
  1. ALPELISIB [Suspect]
     Active Substance: ALPELISIB
     Indication: Oligodendroglioma
     Dosage: UNK
     Route: 065

REACTIONS (4)
  - Oligodendroglioma [Unknown]
  - Malignant neoplasm progression [Unknown]
  - Hyperglycaemia [Recovered/Resolved]
  - Off label use [Unknown]
